FAERS Safety Report 6890172-1 (Version None)
Quarter: 2010Q3

REPORT INFORMATION
  Report Type: 
  Country: None (occurrence: None)
  Receive Date: 20100730
  Receipt Date: 20081113
  Transmission Date: 20110219
  Serious: No
  Sender: FDA-Public Use
  Company Number: US-PFIZER INC-2008059580

PATIENT
  Sex: Female
  Weight: 63.5 kg

DRUGS (5)
  1. LIPITOR [Suspect]
     Indication: BLOOD CHOLESTEROL INCREASED
  2. LIPITOR [Suspect]
  3. SYNTHROID [Concomitant]
  4. XALATAN [Concomitant]
     Indication: GLAUCOMA
  5. TIMOPTIC [Concomitant]
     Indication: GLAUCOMA

REACTIONS (2)
  - CIRCUMSTANCE OR INFORMATION CAPABLE OF LEADING TO MEDICATION ERROR [None]
  - WEIGHT INCREASED [None]
